FAERS Safety Report 10669656 (Version 2)
Quarter: 2014Q4

REPORT INFORMATION
  Report Type: Spontaneous
  Country: US (occurrence: US)
  Receive Date: 20141222
  Receipt Date: 20141230
  Transmission Date: 20150529
  Serious: No
  Sender: FDA-Public Use
  Company Number: US-TEVA-527145USA

PATIENT
  Age: 73 Year
  Sex: Male
  Weight: 92.16 kg

DRUGS (2)
  1. QVAR [Suspect]
     Active Substance: BECLOMETHASONE DIPROPIONATE
     Indication: COUGH
     Route: 065
     Dates: start: 20141014, end: 20141202
  2. QVAR [Suspect]
     Active Substance: BECLOMETHASONE DIPROPIONATE
     Indication: NASOPHARYNGITIS

REACTIONS (5)
  - Dyspnoea [Unknown]
  - Oropharyngeal pain [Recovered/Resolved]
  - Peripheral swelling [Unknown]
  - Throat tightness [Recovered/Resolved]
  - Mobility decreased [Recovered/Resolved]

NARRATIVE: CASE EVENT DATE: 20141202
